FAERS Safety Report 16531300 (Version 1)
Quarter: 2019Q3

REPORT INFORMATION
  Report Type: Spontaneous
  Country: GB (occurrence: GB)
  Receive Date: 20190705
  Receipt Date: 20190705
  Transmission Date: 20191004
  Serious: Yes (Other)
  Sender: FDA-Public Use
  Company Number: GB-PFIZER INC-2019284987

PATIENT
  Age: 47 Year
  Sex: Female
  Weight: 75 kg

DRUGS (12)
  1. VENLAFAXINE [Concomitant]
     Active Substance: VENLAFAXINE HYDROCHLORIDE
     Dosage: 1 DF, 1X/DAY
     Dates: start: 20190517, end: 20190517
  2. CITALOPRAM [Concomitant]
     Active Substance: CITALOPRAM HYDROBROMIDE
     Dosage: 1 DF, 1X/DAY
     Dates: start: 20180424, end: 20190528
  3. SOFRADEX [DEXAMETHASONE;FRAMYCETIN SULFATE;GRAMICIDIN] [Concomitant]
     Dosage: APPLY TO AFFECTED EAR
     Dates: start: 20190508, end: 20190515
  4. DIAZEPAM. [Concomitant]
     Active Substance: DIAZEPAM
     Dosage: 3 DF, 1X/DAY
     Dates: start: 20190517, end: 20190519
  5. PARACETAMOL [Concomitant]
     Active Substance: ACETAMINOPHEN
     Dosage: TAKE ONE OR TWO TABLETS UP TO FOUR TIMES A DAY ...
     Dates: start: 20180314
  6. CINNARIZINE [Concomitant]
     Active Substance: CINNARIZINE
     Dosage: 90 MG, 1X/DAY
     Dates: start: 20190305, end: 20190404
  7. SERTRALINE HCL [Suspect]
     Active Substance: SERTRALINE HYDROCHLORIDE
     Dosage: 50 MG, 1X/DAY
     Dates: start: 20190517
  8. FLUOXETINE [Concomitant]
     Active Substance: FLUOXETINE HYDROCHLORIDE
     Dosage: 1 DF, 1X/DAY
     Dates: start: 20190528
  9. OTOMIZE [Concomitant]
     Active Substance: DEXAMETHASONE\NEOMYCIN SULFATE
     Dates: start: 20190326, end: 20190402
  10. GENTAMICIN. [Concomitant]
     Active Substance: GENTAMICIN
     Dosage: TO AFFECTED EAR
     Dates: start: 20190408, end: 20190413
  11. LANSOPRAZOLE. [Concomitant]
     Active Substance: LANSOPRAZOLE
     Dates: start: 20180314
  12. PROPRANOLOL [Concomitant]
     Active Substance: PROPRANOLOL HYDROCHLORIDE
     Dates: start: 20180613

REACTIONS (3)
  - Diarrhoea [Recovered/Resolved]
  - Headache [Unknown]
  - Abdominal pain upper [Unknown]

NARRATIVE: CASE EVENT DATE: 20190528
